FAERS Safety Report 4979282-3 (Version None)
Quarter: 2006Q2

REPORT INFORMATION
  Report Type: 
  Country: None (occurrence: None)
  Receive Date: 20060421
  Receipt Date: 20051020
  Transmission Date: 20061013
  Serious: Yes (Hospitalization, Disabling, Other)
  Sender: FDA-Public Use
  Company Number: US-MERCK-0510USA08442

PATIENT
  Age: 75 Year
  Sex: Female
  Weight: 82 kg

DRUGS (13)
  1. VIOXX [Suspect]
     Indication: ARTHRITIS
     Route: 048
     Dates: start: 20000127, end: 20010410
  2. VIOXX [Suspect]
     Route: 048
     Dates: start: 20010601, end: 20010101
  3. TAGAMET [Concomitant]
     Indication: GASTROOESOPHAGEAL REFLUX DISEASE
     Route: 065
  4. CORGARD [Concomitant]
     Indication: HYPERTENSION
     Route: 065
     Dates: start: 19650101
  5. TYLENOL W/ CODEINE NO. 3 [Concomitant]
     Indication: PAIN
     Route: 065
  6. CEFTIN [Concomitant]
     Route: 065
  7. K-DUR 10 [Concomitant]
     Route: 065
  8. ASPIRIN [Concomitant]
     Route: 065
  9. VITAMIN E [Concomitant]
     Route: 065
  10. LODINE [Concomitant]
     Route: 065
  11. ALLEGRA [Concomitant]
     Route: 065
  12. FUROSEMIDE [Concomitant]
     Indication: HYPERTENSION
     Route: 065
     Dates: start: 19650101
  13. ATENOLOL [Concomitant]
     Indication: HYPERTENSION
     Route: 065
     Dates: start: 19650101

REACTIONS (26)
  - ANAEMIA [None]
  - ATRIAL FIBRILLATION [None]
  - ATRIOVENTRICULAR BLOCK COMPLETE [None]
  - BRONCHITIS [None]
  - CARDIAC FAILURE CONGESTIVE [None]
  - CARDIOMEGALY [None]
  - CATHETER SITE HAEMORRHAGE [None]
  - CEREBROVASCULAR ACCIDENT [None]
  - CEREBROVASCULAR DISORDER [None]
  - DEHYDRATION [None]
  - DELIRIUM [None]
  - DEMENTIA [None]
  - DYSPNOEA [None]
  - ECCHYMOSIS [None]
  - GASTROINTESTINAL DISORDER [None]
  - HAEMATOMA [None]
  - HALLUCINATION [None]
  - HYPERKALAEMIA [None]
  - HYPERTENSIVE HEART DISEASE [None]
  - METABOLIC ENCEPHALOPATHY [None]
  - NEPHROSCLEROSIS [None]
  - OEDEMA [None]
  - PNEUMONIA [None]
  - RENAL DISORDER [None]
  - RENAL FAILURE [None]
  - RENAL FAILURE CHRONIC [None]
